FAERS Safety Report 12632625 (Version 2)
Quarter: 2016Q3

REPORT INFORMATION
  Report Type: Spontaneous
  Country: US (occurrence: US)
  Receive Date: 20160808
  Receipt Date: 20160808
  Transmission Date: 20161109
  Serious: No
  Sender: FDA-Public Use
  Company Number: US-BEH-2015056287

PATIENT
  Sex: Female
  Weight: 55 kg

DRUGS (37)
  1. HIZENTRA [Suspect]
     Active Substance: HUMAN IMMUNOGLOBULIN G
     Dosage: AS DIRECTED
     Route: 058
  2. NEURONTIN [Concomitant]
     Active Substance: GABAPENTIN
  3. ZANTAC [Concomitant]
     Active Substance: RANITIDINE HYDROCHLORIDE
  4. GLUTATHIONE-L [Concomitant]
  5. BUDESONIDE. [Concomitant]
     Active Substance: BUDESONIDE
  6. DOXYCYCLINE. [Concomitant]
     Active Substance: DOXYCYCLINE
  7. TRAMADOL. [Concomitant]
     Active Substance: TRAMADOL
  8. ALPHA LIPOIC ACID [Concomitant]
     Active Substance: .ALPHA.-LIPOIC ACID
  9. MUPIROCIN. [Concomitant]
     Active Substance: MUPIROCIN
  10. SKELAXIN [Concomitant]
     Active Substance: METAXALONE
  11. THYROID PREPARATIONS [Concomitant]
     Active Substance: UNSPECIFIED INGREDIENT
  12. HIZENTRA [Suspect]
     Active Substance: HUMAN IMMUNOGLOBULIN G
     Route: 058
  13. ACETAMINOPHEN. [Concomitant]
     Active Substance: ACETAMINOPHEN
  14. DIFLUCAN [Concomitant]
     Active Substance: FLUCONAZOLE
  15. LOVENOX [Concomitant]
     Active Substance: ENOXAPARIN SODIUM
  16. ACTIGALL [Concomitant]
     Active Substance: URSODIOL
  17. SELENIUM [Concomitant]
     Active Substance: SELENIUM
  18. ANDROGEL [Concomitant]
     Active Substance: TESTOSTERONE
  19. PROMETHAZINE [Concomitant]
     Active Substance: PROMETHAZINE\PROMETHAZINE HYDROCHLORIDE
  20. MULTIVITAMINS [Concomitant]
     Active Substance: VITAMINS
  21. HIZENTRA [Suspect]
     Active Substance: HUMAN IMMUNOGLOBULIN G
     Indication: SELECTIVE IGG SUBCLASS DEFICIENCY
     Dosage: FREQUENCY: AS DIRECTED
     Route: 058
  22. LIDOCAINE/PRILOCAINE [Concomitant]
     Active Substance: LIDOCAINE\PRILOCAINE
  23. CEFTRIAXONE. [Concomitant]
     Active Substance: CEFTRIAXONE
  24. POLYETHYLENE GLYCOL [Concomitant]
     Active Substance: POLYETHYLENE GLYCOLS
  25. AMBIEN [Concomitant]
     Active Substance: ZOLPIDEM TARTRATE
  26. ZOFRAN [Concomitant]
     Active Substance: ONDANSETRON HYDROCHLORIDE
  27. VITAMIN D [Concomitant]
     Active Substance: CHOLECALCIFEROL
  28. MAGNESIUM CHLORIDE. [Concomitant]
     Active Substance: MAGNESIUM CHLORIDE
  29. MAGIC MOUTHWASH [Concomitant]
     Active Substance: DIPHENHYDRAMINE HYDROCHLORIDE\LIDOCAINE HYDROCHLORIDE\NYSTATIN
  30. ROCEPHIN [Concomitant]
     Active Substance: CEFTRIAXONE SODIUM
  31. DIPHENHYDRAMINE. [Concomitant]
     Active Substance: DIPHENHYDRAMINE
  32. LIDOCAINE. [Concomitant]
     Active Substance: LIDOCAINE
  33. EPIPEN [Concomitant]
     Active Substance: EPINEPHRINE
  34. VANCOMYCIN [Concomitant]
     Active Substance: VANCOMYCIN
  35. FLORASTOR [Concomitant]
     Active Substance: SACCHAROMYCES CEREVISIAE
  36. PERCOCET [Concomitant]
     Active Substance: ACETAMINOPHEN\OXYCODONE HYDROCHLORIDE
  37. DHEA [Concomitant]
     Active Substance: PRASTERONE

REACTIONS (1)
  - Headache [Unknown]
